FAERS Safety Report 9670757 (Version 1)
Quarter: 2013Q4

REPORT INFORMATION
  Report Type: Report from Study
  Country: CA (occurrence: CA)
  Receive Date: 20131106
  Receipt Date: 20131106
  Transmission Date: 20140711
  Serious: Yes (Other)
  Sender: FDA-Public Use
  Company Number: CA-JNJFOC-20131017926

PATIENT
  Sex: Female
  Weight: 75 kg

DRUGS (4)
  1. REMICADE [Suspect]
     Indication: COLITIS ULCERATIVE
     Route: 042
     Dates: start: 20131018
  2. SOLU-MEDROL [Concomitant]
     Route: 042
     Dates: start: 20131008
  3. TAZOCIN [Concomitant]
     Route: 042
     Dates: start: 20131015, end: 20131022
  4. MIN-OVRAL [Concomitant]
     Indication: CONTRACEPTION
     Route: 048

REACTIONS (3)
  - Rectal haemorrhage [Unknown]
  - Colitis [Unknown]
  - Haemoglobin decreased [Unknown]
